FAERS Safety Report 6630814-9 (Version None)
Quarter: 2010Q1

REPORT INFORMATION
  Report Type: 
  Country: None (occurrence: None)
  Receive Date: 20100311
  Receipt Date: 20100304
  Transmission Date: 20100710
  Serious: Yes (Death, Hospitalization)
  Sender: FDA-Public Use
  Company Number: AU-SANOFI-AVENTIS-2010SA012444

PATIENT
  Age: 69 Year
  Sex: Female

DRUGS (14)
  1. LANTUS [Suspect]
     Indication: TYPE 2 DIABETES MELLITUS
     Route: 058
     Dates: start: 20100101
  2. LANTUS [Suspect]
     Route: 058
  3. LANTUS [Suspect]
     Route: 058
  4. LANTUS [Suspect]
     Route: 058
  5. LANTUS [Suspect]
     Route: 058
  6. METFORMIN HCL [Concomitant]
  7. ACTONEL [Concomitant]
  8. AROPAX [Concomitant]
  9. PANAMAX [Concomitant]
  10. PARIET [Concomitant]
  11. ROPINIROLE [Concomitant]
  12. FLUTICASONE PROPIONATE/SALMETEROL [Concomitant]
  13. VENTOLIN [Concomitant]
  14. TRITACE [Concomitant]

REACTIONS (1)
  - DIARRHOEA [None]
